FAERS Safety Report 4751442-6 (Version None)
Quarter: 2005Q3

REPORT INFORMATION
  Report Type: 
  Country: None (occurrence: None)
  Receive Date: 20050824
  Receipt Date: 20050815
  Transmission Date: 20060218
  Serious: Yes (Other)
  Sender: FDA-Public Use
  Company Number: PHBS2005DK12153

PATIENT
  Age: 56 Year
  Sex: Female

DRUGS (5)
  1. ZOMETA [Suspect]
     Indication: METASTASES TO BONE
     Dosage: 4 MG, QMO
     Route: 042
     Dates: start: 20021030, end: 20021201
  2. ZOMETA [Suspect]
     Dosage: 4 MG, QMO
     Route: 042
     Dates: start: 20030501
  3. METADON [Concomitant]
     Indication: PAIN
     Route: 065
  4. PREDNISOLONE [Concomitant]
     Indication: PAIN
     Route: 065
  5. ELTROXIN [Concomitant]
     Indication: METABOLIC DISORDER
     Route: 065

REACTIONS (2)
  - ASEPTIC NECROSIS BONE [None]
  - BONE DEVELOPMENT ABNORMAL [None]
